FAERS Safety Report 10700771 (Version 2)
Quarter: 2015Q1

REPORT INFORMATION
  Report Type: Report from Study
  Country: DE (occurrence: DE)
  Receive Date: 20150109
  Receipt Date: 20150123
  Transmission Date: 20150721
  Serious: Yes (Death, Other)
  Sender: FDA-Public Use
  Company Number: DE-CELGENE-DEU-2015011330

PATIENT
  Age: 57 Year
  Sex: Male

DRUGS (8)
  1. ABRAXANE [Suspect]
     Active Substance: PACLITAXEL
     Route: 065
  2. GEMCITABINE [Concomitant]
     Active Substance: GEMCITABINE\GEMCITABINE HYDROCHLORIDE
     Route: 065
  3. ABRAXANE [Suspect]
     Active Substance: PACLITAXEL
     Route: 065
  4. GEMCITABINE [Concomitant]
     Active Substance: GEMCITABINE\GEMCITABINE HYDROCHLORIDE
     Indication: PANCREATIC CARCINOMA METASTATIC
     Route: 065
  5. ABRAXANE [Suspect]
     Active Substance: PACLITAXEL
     Route: 065
  6. GEMCITABINE [Concomitant]
     Active Substance: GEMCITABINE\GEMCITABINE HYDROCHLORIDE
     Route: 065
  7. GEMCITABINE [Concomitant]
     Active Substance: GEMCITABINE\GEMCITABINE HYDROCHLORIDE
     Route: 065
  8. ABRAXANE [Suspect]
     Active Substance: PACLITAXEL
     Indication: PANCREATIC CARCINOMA METASTATIC
     Route: 041

REACTIONS (11)
  - Death [Fatal]
  - Leukopenia [Unknown]
  - Intestinal obstruction [Unknown]
  - Anaemia [Unknown]
  - Neuropathy peripheral [Unknown]
  - Rash [Unknown]
  - Metastases to peritoneum [Unknown]
  - Alopecia [Unknown]
  - Adenocarcinoma pancreas [Unknown]
  - Thrombocytopenia [Unknown]
  - Nail disorder [Unknown]

NARRATIVE: CASE EVENT DATE: 201309
